FAERS Safety Report 9407735 (Version 1)
Quarter: 2013Q3

REPORT INFORMATION
  Report Type: Spontaneous
  Country: US (occurrence: None)
  Receive Date: 20130717
  Receipt Date: 20130717
  Transmission Date: 20140515
  Serious: Yes (Hospitalization)
  Sender: FDA-Public Use
  Company Number: None

PATIENT
  Age: 56 Year
  Sex: Male
  Weight: 58.5 kg

DRUGS (2)
  1. CITALOPRAM [Suspect]
     Indication: DEPRESSION
     Route: 048
     Dates: start: 20130424, end: 20130522
  2. DIPHENHYDRAMINE [Suspect]
     Route: 048

REACTIONS (8)
  - Suicide attempt [None]
  - Somnolence [None]
  - Overdose [None]
  - Somnolence [None]
  - Electrocardiogram QRS complex prolonged [None]
  - Sinus tachycardia [None]
  - Depressed mood [None]
  - Palpitations [None]
